FAERS Safety Report 4327852-8 (Version None)
Quarter: 2004Q1

REPORT INFORMATION
  Report Type: 
  Country: None (occurrence: None)
  Receive Date: 20040325
  Receipt Date: 20040315
  Transmission Date: 20041129
  Serious: Yes (Hospitalization)
  Sender: FDA-Public Use
  Company Number: JP-JNJFOC-20040304428

PATIENT
  Age: 80 Year
  Sex: Female

DRUGS (3)
  1. RISPERDAL [Suspect]
     Indication: DELIRIUM
     Dosage: 1 MG, IN 1 DAY, ORAL
     Route: 048
     Dates: start: 20040305, end: 20040312
  2. ASPIRIN [Suspect]
     Indication: ANEURYSM
     Dosage: 1 DOSE(S), IN 1 DAY, ORAL
     Route: 048
  3. BROTIZOLAM          (BROTIZOLAM) UNSPECIFIED [Concomitant]

REACTIONS (3)
  - ANEURYSM [None]
  - DRUG INTERACTION [None]
  - SUBARACHNOID HAEMORRHAGE [None]
